FAERS Safety Report 13466465 (Version 2)
Quarter: 2017Q2

REPORT INFORMATION
  Report Type: Spontaneous
  Country: US (occurrence: US)
  Receive Date: 20170421
  Receipt Date: 20170508
  Transmission Date: 20170830
  Serious: Yes (Hospitalization, Other)
  Sender: FDA-Public Use
  Company Number: US-BAYER-2017-071233

PATIENT
  Age: 46 Year
  Sex: Male
  Weight: 108.5 kg

DRUGS (7)
  1. ALEVE [Suspect]
     Active Substance: NAPROXEN SODIUM
     Indication: OSTEOARTHRITIS
     Dosage: 500 MG, BID
     Route: 048
     Dates: start: 20170314, end: 20170321
  2. AMLODIPINE [Concomitant]
     Active Substance: AMLODIPINE BESYLATE
     Indication: HYPERTENSION
     Dosage: UNK
     Dates: start: 201203
  3. LOSARTAN. [Concomitant]
     Active Substance: LOSARTAN
     Indication: HYPERTENSION
     Dosage: UNK
     Dates: start: 201203
  4. TRAMADOL. [Concomitant]
     Active Substance: TRAMADOL
     Indication: OSTEOARTHRITIS
     Dosage: 50 MG, TID
     Route: 048
     Dates: start: 2009, end: 20170314
  5. IBUPROFEN. [Concomitant]
     Active Substance: IBUPROFEN
     Indication: OSTEOARTHRITIS
     Dosage: 600 MG, QD
     Route: 048
     Dates: start: 201606, end: 20170314
  6. CELECOXIB. [Concomitant]
     Active Substance: CELECOXIB
  7. MELOXICAM. [Concomitant]
     Active Substance: MELOXICAM
     Indication: OSTEOARTHRITIS
     Dosage: 15 MG, QD
     Route: 048
     Dates: start: 201606, end: 20170314

REACTIONS (5)
  - Malaise [Recovered/Resolved]
  - Dizziness [Recovered/Resolved]
  - Gastric haemorrhage [Recovered/Resolved with Sequelae]
  - Haemoglobin decreased [None]
  - Melaena [Recovered/Resolved]

NARRATIVE: CASE EVENT DATE: 201703
